FAERS Safety Report 4321893-2 (Version None)
Quarter: 2004Q1

REPORT INFORMATION
  Report Type: 
  Country: None (occurrence: None)
  Receive Date: 20040322
  Receipt Date: 20031212
  Transmission Date: 20041129
  Serious: No
  Sender: FDA-Public Use
  Company Number: A-US2002-01729

PATIENT
  Age: 44 Year
  Sex: Female
  Weight: 66.2 kg

DRUGS (11)
  1. TRACLEER [Suspect]
     Indication: PULMONARY HYPERTENSION
     Dosage: 62.5 MG, BID, ORAL; 125 MG, BID, ORAL; 62.5 MG, BID, ORAL; 93.75 MG, BID, ORAL; 125 MG, BID, ORAL
     Route: 048
     Dates: start: 20020201, end: 20020228
  2. TRACLEER [Suspect]
     Indication: PULMONARY HYPERTENSION
     Dosage: 62.5 MG, BID, ORAL; 125 MG, BID, ORAL; 62.5 MG, BID, ORAL; 93.75 MG, BID, ORAL; 125 MG, BID, ORAL
     Route: 048
     Dates: start: 20020301, end: 20021110
  3. TRACLEER [Suspect]
     Indication: PULMONARY HYPERTENSION
     Dosage: 62.5 MG, BID, ORAL; 125 MG, BID, ORAL; 62.5 MG, BID, ORAL; 93.75 MG, BID, ORAL; 125 MG, BID, ORAL
     Route: 048
     Dates: start: 20021111, end: 20030227
  4. TRACLEER [Suspect]
     Indication: PULMONARY HYPERTENSION
     Dosage: 62.5 MG, BID, ORAL; 125 MG, BID, ORAL; 62.5 MG, BID, ORAL; 93.75 MG, BID, ORAL; 125 MG, BID, ORAL
     Route: 048
     Dates: start: 20030228, end: 20030402
  5. TRACLEER [Suspect]
     Indication: PULMONARY HYPERTENSION
     Dosage: 62.5 MG, BID, ORAL; 125 MG, BID, ORAL; 62.5 MG, BID, ORAL; 93.75 MG, BID, ORAL; 125 MG, BID, ORAL
     Route: 048
     Dates: start: 20030403
  6. FLOLAN [Concomitant]
  7. COUMADIN [Concomitant]
  8. ALDACTONE [Concomitant]
  9. LASIX [Concomitant]
  10. POTASSIUM (POTASSIUM) [Concomitant]
  11. FLONASE [Concomitant]

REACTIONS (5)
  - ALANINE AMINOTRANSFERASE INCREASED [None]
  - ASPARTATE AMINOTRANSFERASE INCREASED [None]
  - BLOOD ALKALINE PHOSPHATASE INCREASED [None]
  - FLUID RETENTION [None]
  - LIVER FUNCTION TEST ABNORMAL [None]
